FAERS Safety Report 4462580-X (Version None)
Quarter: 2004Q3

REPORT INFORMATION
  Report Type: 
  Country: None (occurrence: None)
  Receive Date: 20040924
  Receipt Date: 20040914
  Transmission Date: 20050211
  Serious: Yes (Other)
  Sender: FDA-Public Use
  Company Number: BR-2004-030583

PATIENT
  Age: 28 Year
  Sex: Female
  Weight: 65 kg

DRUGS (1)
  1. MIRENA [Suspect]
     Indication: CONTRACEPTION
     Dosage: 20 ?G/DAY, CONT, INTRA-UTERINE
     Route: 015
     Dates: start: 20020307, end: 20040701

REACTIONS (3)
  - BREAST CANCER METASTATIC [None]
  - LABORATORY TEST ABNORMAL [None]
  - OESTROGEN RECEPTOR ASSAY POSITIVE [None]
